FAERS Safety Report 20296302 (Version 1)
Quarter: 2022Q1

REPORT INFORMATION
  Report Type: Spontaneous
  Country: US (occurrence: None)
  Receive Date: 20220105
  Receipt Date: 20220105
  Transmission Date: 20220423
  Serious: Yes (Hospitalization, Other)
  Sender: FDA-Public Use
  Company Number: US-Hikma Pharmaceuticals USA Inc.-US-H14001-21-05651

PATIENT
  Age: 12 Year
  Sex: Female

DRUGS (11)
  1. CYCLOPHOSPHAMIDE [Suspect]
     Active Substance: CYCLOPHOSPHAMIDE
     Indication: T-cell type acute leukaemia
     Dosage: UNKNOWN, PREP REGIMEN
     Route: 065
  2. CYCLOPHOSPHAMIDE [Suspect]
     Active Substance: CYCLOPHOSPHAMIDE
     Dosage: UNKNOWN, REDUCED INTENSITY CONDITIONING
     Route: 065
  3. THIOTEPA [Suspect]
     Active Substance: THIOTEPA
     Indication: T-cell type acute leukaemia
     Dosage: UNKNOWN, PREP REGIMEN
     Route: 065
  4. THIOTEPA [Suspect]
     Active Substance: THIOTEPA
     Dosage: UNKNOWN, REDUCED INTENSITY CONDITIONING
     Route: 065
  5. FLUDARABINE [Suspect]
     Active Substance: FLUDARABINE PHOSPHATE
     Indication: T-cell type acute leukaemia
     Dosage: UNKNOWN, PREP REGIMEN
     Route: 065
  6. FLUDARABINE [Suspect]
     Active Substance: FLUDARABINE PHOSPHATE
     Dosage: UNKNOWN, REDUCED INTENSITY CONDITIONING
     Route: 065
  7. MELPHALAN [Suspect]
     Active Substance: MELPHALAN
     Indication: T-cell type acute leukaemia
     Dosage: UNKNOWN, PREP REGIMEN
     Route: 065
  8. MELPHALAN [Suspect]
     Active Substance: MELPHALAN
     Dosage: UNKNOWN, REDUCED INTENSITY CONDITIONING
     Route: 065
  9. ANTI-THYMOCYTE GLOBULIN (RABBIT) NOS [Suspect]
     Active Substance: LAPINE T-LYMPHOCYTE IMMUNE GLOBULIN
     Indication: T-cell type acute leukaemia
     Dosage: UNKNOWN, PREP REGIMEN
     Route: 065
  10. ANTI-THYMOCYTE GLOBULIN (RABBIT) NOS [Suspect]
     Active Substance: LAPINE T-LYMPHOCYTE IMMUNE GLOBULIN
     Dosage: UNKNOWN, REDUCED INTENSITY CONDITIONING
     Route: 065
  11. GRANULOCYTE COLONY-STIMULATING FACTOR NOS [Concomitant]
     Active Substance: GRANULOCYTE COLONY-STIMULATING FACTOR NOS
     Indication: T-cell type acute leukaemia
     Dosage: UNKNOWN
     Route: 065

REACTIONS (7)
  - Cytomegalovirus viraemia [Unknown]
  - Graft versus host disease [Unknown]
  - Cytomegalovirus infection reactivation [Unknown]
  - Thrombotic microangiopathy [Unknown]
  - Organising pneumonia [Recovering/Resolving]
  - Pyrexia [Unknown]
  - Hyperferritinaemia [Unknown]
